FAERS Safety Report 7059970-8 (Version None)
Quarter: 2010Q4

REPORT INFORMATION
  Report Type: 
  Country: None (occurrence: None)
  Receive Date: 20101025
  Receipt Date: 20101015
  Transmission Date: 20110411
  Serious: Yes (Other)
  Sender: FDA-Public Use
  Company Number: JP-ASTRAZENECA-2010SE49318

PATIENT
  Age: 65 Year
  Sex: Female

DRUGS (4)
  1. CRESTOR [Suspect]
     Indication: DYSLIPIDAEMIA
     Route: 048
     Dates: start: 20100701
  2. AZELASTINE HCL [Concomitant]
     Dosage: DOSE UNKNOWN
     Route: 048
  3. SEIBULE [Concomitant]
     Dosage: DOSE UNKNOWN
     Route: 048
  4. ACTOS [Concomitant]
     Dosage: DOSE UNKNOWN
     Route: 048

REACTIONS (1)
  - DYSGEUSIA [None]
